FAERS Safety Report 4601959-X (Version None)
Quarter: 2005Q1

REPORT INFORMATION
  Report Type: 
  Country: None (occurrence: None)
  Receive Date: 20050128
  Receipt Date: 20041021
  Transmission Date: 20050727
  Serious: No
  Sender: FDA-Public Use
  Company Number: TOS-000662

PATIENT
  Weight: 72 kg

DRUGS (2)
  1. TOSITUMOMAB, IODINE I 131 TOSITUMOMAB(TOSITUMOMAB,IODINE I 131 TOSITUM [Suspect]
     Indication: NON-HODGKIN'S LYMPHOMA
     Dosage: SEE IMAGE
     Route: 042
     Dates: start: 20041006, end: 20041006
  2. TOSITUMOMAB, IODINE I 131 TOSITUMOMAB(TOSITUMOMAB,IODINE I 131 TOSITUM [Suspect]
     Indication: NON-HODGKIN'S LYMPHOMA
     Dosage: SEE IMAGE
     Route: 042
     Dates: start: 20041013, end: 20041013

REACTIONS (1)
  - PLATELET COUNT DECREASED [None]
